FAERS Safety Report 7313647-X (Version None)
Quarter: 2011Q1

REPORT INFORMATION
  Report Type: 
  Country: None (occurrence: None)
  Receive Date: 20110225
  Receipt Date: 20110223
  Transmission Date: 20110831
  Serious: Yes (Hospitalization, Other)
  Sender: FDA-Public Use
  Company Number: BR-PFIZER INC-2011021720

PATIENT
  Age: 48 Year
  Sex: Female

DRUGS (1)
  1. FRONTAL XR [Suspect]
     Dosage: 2.0 MG, 2X/DAY
     Route: 048
     Dates: start: 20080131

REACTIONS (2)
  - ALCOHOLISM [None]
  - DEPRESSION [None]
